FAERS Safety Report 6235399-7 (Version None)
Quarter: 2009Q2

REPORT INFORMATION
  Report Type: 
  Country: None (occurrence: None)
  Receive Date: 20090618
  Receipt Date: 20090113
  Transmission Date: 20091009
  Serious: No
  Sender: FDA-Public Use
  Company Number: US-ASTRAZENECA-2009UW01059

PATIENT
  Age: 82 Year
  Sex: Female
  Weight: 59 kg

DRUGS (8)
  1. ENTOCORT EC [Suspect]
     Indication: COLITIS
     Route: 048
     Dates: start: 20081216, end: 20090106
  2. ASACOL [Concomitant]
  3. ASPIRIN [Concomitant]
  4. CRESTOR [Concomitant]
     Route: 048
  5. ZETIA [Concomitant]
  6. LOMOTIL [Concomitant]
  7. CALTRATE [Concomitant]
  8. OMEGA FISH OIL [Concomitant]

REACTIONS (2)
  - MUSCLE SPASMS [None]
  - MUSCULOSKELETAL DISCOMFORT [None]
